FAERS Safety Report 23463725 (Version 1)
Quarter: 2024Q1

REPORT INFORMATION
  Report Type: Report from Study
  Country: US (occurrence: US)
  Receive Date: 20240201
  Receipt Date: 20240201
  Transmission Date: 20240410
  Serious: Yes (Hospitalization, Other)
  Sender: FDA-Public Use
  Company Number: US-ABBVIE-5606151

PATIENT
  Age: 75 Year
  Sex: Female

DRUGS (1)
  1. HUMIRA [Suspect]
     Active Substance: ADALIMUMAB
     Indication: Colitis ulcerative
     Dosage: CITRATE FREE, FORM STRENGTH 40 MILLIGRAM
     Route: 058
     Dates: start: 20231129

REACTIONS (4)
  - Respiratory disorder [Not Recovered/Not Resolved]
  - Pneumothorax [Unknown]
  - Peripheral swelling [Unknown]
  - Dysphagia [Unknown]

NARRATIVE: CASE EVENT DATE: 20240121
